FAERS Safety Report 24706624 (Version 1)
Quarter: 2024Q4

REPORT INFORMATION
  Report Type: Report from Study
  Country: US (occurrence: US)
  Receive Date: 20241206
  Receipt Date: 20241206
  Transmission Date: 20250114
  Serious: Yes (Death, Hospitalization)
  Sender: CALLIDITAS THERAPEUTICS AB
  Company Number: US-Calliditas-2024CAL02609

PATIENT
  Age: 66 Year
  Sex: Male

DRUGS (2)
  1. TARPEYO [Suspect]
     Active Substance: BUDESONIDE
     Indication: IgA nephropathy
     Route: 048
     Dates: start: 20240731, end: 20241109
  2. VASOPRESSIN [Concomitant]
     Active Substance: VASOPRESSIN

REACTIONS (4)
  - Septic shock [Fatal]
  - Abdominal infection [Fatal]
  - Renal failure [Fatal]
  - Dialysis [Fatal]
